FAERS Safety Report 7447473-8 (Version None)
Quarter: 2011Q2

REPORT INFORMATION
  Report Type: 
  Country: None (occurrence: None)
  Receive Date: 20110421
  Receipt Date: 20110412
  Transmission Date: 20111010
  Serious: Yes (Other)
  Sender: FDA-Public Use
  Company Number: 1000020146

PATIENT
  Age: 44 Year
  Sex: Male

DRUGS (8)
  1. LEXAPRO [Suspect]
     Dosage: ORAL
     Route: 048
     Dates: start: 20090826
  2. SPIRIVA (TIOTROPIUM BROMIDE) (TIOTROPIUM BROMIDE) [Concomitant]
  3. LEXAPRO [Suspect]
     Dosage: (10 MG),ORAL, TEMPORARILY DOSE REDUCTION, ORAL
     Route: 048
     Dates: start: 20090826
  4. FLUTICASONE PROPIONATE (FLUTICASONE PROPIONATE)(FLUTICASONE PROPIONATE [Concomitant]
  5. SYMBICORT(BUDESONIDE, FORMOTEROL FUMARATE)(BUDESONIDE, FORMOTEROL FUMA [Concomitant]
  6. AERIUS (DESLORATADINE) (TABLETS) (DESLORATADINE) [Concomitant]
  7. MONTELUKAST (MONTELUKAST) (TABLETS) (MONTELUKAST) [Concomitant]
  8. PANTOZOL (PANTOPRAZOLE SODIUM)(TABLETS)(PANTOPRAZOLE SODIUM) [Concomitant]

REACTIONS (1)
  - POLYNEUROPATHY [None]
